FAERS Safety Report 7742775-X (Version None)
Quarter: 2011Q3

REPORT INFORMATION
  Report Type: 
  Country: None (occurrence: None)
  Receive Date: 20110912
  Receipt Date: 20110901
  Transmission Date: 20111222
  Serious: Yes (Other)
  Sender: FDA-Public Use
  Company Number: DE-CELGENEUS-062-21660-11090208

PATIENT
  Sex: Female

DRUGS (1)
  1. ABRAXANE [Suspect]
     Indication: BREAST CANCER
     Route: 041

REACTIONS (1)
  - HUMERUS FRACTURE [None]
